FAERS Safety Report 7135331-8 (Version None)
Quarter: 2010Q4

REPORT INFORMATION
  Report Type: 
  Country: None (occurrence: None)
  Receive Date: 20101203
  Receipt Date: 20101124
  Transmission Date: 20110411
  Serious: Yes (Other)
  Sender: FDA-Public Use
  Company Number: CA-JNJCH-2010027354

PATIENT
  Age: 12 Year
  Sex: Male
  Weight: 36.3 kg

DRUGS (1)
  1. BENADRYL ALLERGY CHEWABLE TABLET [Suspect]
     Indication: RASH
     Dosage: TEXT:TWICE
     Route: 048
     Dates: start: 20100901, end: 20100901

REACTIONS (2)
  - OFF LABEL USE [None]
  - SYNCOPE [None]
